FAERS Safety Report 17087113 (Version 2)
Quarter: 2022Q2

REPORT INFORMATION
  Report Type: Spontaneous
  Country: DE (occurrence: None)
  Receive Date: 20191128
  Receipt Date: 20220505
  Transmission Date: 20220721
  Serious: Yes (Other)
  Sender: FDA-Public Use
  Company Number: DE-ROCHE-2477339

PATIENT
  Age: 55 Year
  Sex: Female
  Weight: 45 kg

DRUGS (5)
  1. MABTHERA [Suspect]
     Active Substance: RITUXIMAB
     Indication: Diffuse large B-cell lymphoma
     Dosage: 1RST LINE, 6 CYCLES
     Route: 065
     Dates: start: 201803, end: 201808
  2. MABTHERA [Suspect]
     Active Substance: RITUXIMAB
     Dosage: 3RD LINE, R-DHAC, 1 CYCLES
     Route: 065
     Dates: start: 201903
  3. MABTHERA [Suspect]
     Active Substance: RITUXIMAB
     Dosage: 4TH LINE, R-GEMOX, 2 CYCLES
     Route: 065
     Dates: start: 201904, end: 201905
  4. CYCLOPHOSPHAMIDE\DOXORUBICIN\PREDNISONE\VINCRISTINE [Suspect]
     Active Substance: CYCLOPHOSPHAMIDE\DOXORUBICIN\PREDNISONE\VINCRISTINE
     Indication: Diffuse large B-cell lymphoma
     Dosage: 1RST LINE, 6 CYCLES, R-CHOP
     Route: 065
     Dates: start: 201803, end: 201808
  5. GEMCITABINE HYDROCHLORIDE\OXALIPLATIN [Suspect]
     Active Substance: GEMCITABINE HYDROCHLORIDE\OXALIPLATIN
     Indication: Diffuse large B-cell lymphoma
     Dosage: 4TH LINE, 2 CYCLES, R-GEMOX
     Route: 065
     Dates: start: 201904, end: 201905

REACTIONS (8)
  - Congestive cardiomyopathy [Unknown]
  - Haemoglobin decreased [Unknown]
  - Platelet count decreased [Unknown]
  - Blood creatinine increased [Unknown]
  - International normalised ratio decreased [Unknown]
  - Activated partial thromboplastin time shortened [Unknown]
  - Malignant neoplasm progression [Unknown]
  - Cytokine release syndrome [Unknown]

NARRATIVE: CASE EVENT DATE: 20191111
